FAERS Safety Report 9994810 (Version 1)
Quarter: 2014Q1

REPORT INFORMATION
  Report Type: Spontaneous
  Country: CA (occurrence: None)
  Receive Date: 20140306
  Receipt Date: 20140306
  Transmission Date: 20141002
  Serious: Yes (Hospitalization)
  Sender: FDA-Public Use
  Company Number: VAL_03018_2014

PATIENT
  Age: 76 Year
  Sex: Female
  Weight: 94 kg

DRUGS (17)
  1. METOPROLOL TARTRATE [Suspect]
     Indication: PRODUCT USED FOR UNKNOWN INDICATION
  2. ALISKIREN VS PLACEBO [Suspect]
     Indication: CARDIOVASCULAR DISORDER
     Route: 048
     Dates: start: 20080814, end: 20111221
  3. INSULIN HUMULIN 70/30 [Suspect]
     Indication: DIABETES MELLITUS
  4. RAMIPRIL [Concomitant]
  5. GLUCOSAMINE [Concomitant]
  6. ASA [Concomitant]
  7. VITAMIN D /00107901/ [Concomitant]
  8. MULTIVITAMINS [Concomitant]
  9. NORVASC [Concomitant]
  10. LIPITOR [Concomitant]
  11. ATENOLOL [Concomitant]
  12. METFORMIN [Concomitant]
  13. ACETAMINOPHEN [Concomitant]
  14. AMLODIPINE [Concomitant]
  15. ATORVASTATIN [Concomitant]
  16. CALCIUM [Concomitant]
  17. HYDROCHLOROTHIAZIDE [Concomitant]

REACTIONS (6)
  - Osteoarthritis [None]
  - Disease progression [None]
  - Mobility decreased [None]
  - Fall [None]
  - Hyperuricaemia [None]
  - Urinary tract infection [None]
